FAERS Safety Report 7387305-X (Version None)
Quarter: 2011Q1

REPORT INFORMATION
  Report Type: 
  Country: None (occurrence: None)
  Receive Date: 20110331
  Receipt Date: 20110318
  Transmission Date: 20110831
  Serious: Yes (Hospitalization, Other)
  Sender: FDA-Public Use
  Company Number: US-ELI_LILLY_AND_COMPANY-US201103006438

PATIENT
  Age: 56 Year
  Sex: Male

DRUGS (5)
  1. EFFIENT [Suspect]
     Indication: STENT PLACEMENT
     Dosage: 10 MG, QD
     Route: 065
     Dates: start: 20100601
  2. BYSTOLIC [Concomitant]
     Dosage: UNK
     Route: 065
  3. FLOMAX [Concomitant]
     Dosage: UNK UNK, UNKNOWN
     Route: 065
  4. PROSCAR [Concomitant]
     Dosage: 5 MG, UNKNOWN
     Route: 065
  5. ASPIRIN [Concomitant]
     Dosage: 81 MG, UNKNOWN
     Route: 065

REACTIONS (3)
  - HAEMORRHAGE URINARY TRACT [None]
  - URINARY RETENTION [None]
  - BLOOD URINE PRESENT [None]
